FAERS Safety Report 23231650 (Version 1)
Quarter: 2023Q4

REPORT INFORMATION
  Report Type: Spontaneous
  Country: US (occurrence: None)
  Receive Date: 20231124
  Receipt Date: 20231124
  Transmission Date: 20240109
  Serious: No
  Sender: FDA-Public Use
  Company Number: None

PATIENT
  Age: 81 Year
  Sex: Male
  Weight: 52.62 kg

DRUGS (1)
  1. HOMEOPATHICS [Suspect]
     Active Substance: ARNICA MONTANA\CAUSTICUM\COMFREY ROOT\HOMEOPATHICS\LEDUM PALUSTRE TWIG\PSEUDOGNAPHALIUM OBTUSIFOLIUM
     Indication: Diarrhoea
     Dosage: OTHER FREQUENCY : BEFORE MEALS;?
     Route: 048
     Dates: start: 20231117, end: 20231118

REACTIONS (2)
  - Gastrointestinal tract irritation [None]
  - Product formulation issue [None]
